FAERS Safety Report 25798680 (Version 1)
Quarter: 2025Q3

REPORT INFORMATION
  Report Type: Spontaneous
  Country: US (occurrence: US)
  Receive Date: 20250913
  Receipt Date: 20250913
  Transmission Date: 20251021
  Serious: No
  Sender: SANOFI AVENTIS
  Company Number: US-SA-2025SA272151

PATIENT
  Sex: Female
  Weight: 54.875 kg

DRUGS (15)
  1. DUPIXENT [Suspect]
     Active Substance: DUPILUMAB
     Indication: Dermatitis atopic
     Dosage: 300 MG, QOW
     Route: 058
  2. NEMLUVIO [Concomitant]
     Active Substance: NEMOLIZUMAB-ILTO
  3. TYLENOL [Concomitant]
     Active Substance: ACETAMINOPHEN
  4. VITAMIN D NOS [Concomitant]
     Active Substance: CHOLECALCIFEROL\ERGOCALCIFEROL
  5. EXCEDRIN MIGRAINE [Concomitant]
     Active Substance: ACETAMINOPHEN\ASPIRIN\CAFFEINE
  6. COQMAX UBIQUINOL [Concomitant]
  7. MELOXICAM [Concomitant]
     Active Substance: MELOXICAM
  8. TACROLIMUS [Concomitant]
     Active Substance: TACROLIMUS
  9. ROSUVASTATIN CALCIUM [Concomitant]
     Active Substance: ROSUVASTATIN CALCIUM
  10. LIDOCAINE [Concomitant]
     Active Substance: LIDOCAINE
  11. CLOBETASOL [Concomitant]
     Active Substance: CLOBETASOL
  12. OPZELURA [Concomitant]
     Active Substance: RUXOLITINIB PHOSPHATE
  13. CALCIUM [Concomitant]
     Active Substance: CALCIUM
  14. ASPIRIN [Concomitant]
     Active Substance: ASPIRIN
  15. LINZESS [Concomitant]
     Active Substance: LINACLOTIDE

REACTIONS (1)
  - Drug ineffective [Unknown]
